FAERS Safety Report 7776257-6 (Version None)
Quarter: 2011Q3

REPORT INFORMATION
  Report Type: 
  Country: None (occurrence: None)
  Receive Date: 20110921
  Receipt Date: 20110921
  Transmission Date: 20111222
  Serious: Yes (Disabling, Other)
  Sender: FDA-Public Use
  Company Number: None

PATIENT
  Age: 29 Year
  Sex: Male
  Weight: 72.7 kg

DRUGS (2)
  1. PROPECIA [Suspect]
     Indication: ANDROGENETIC ALOPECIA
     Dosage: 1 TABLET DAILY ORAL
     Route: 048
     Dates: start: 20100129, end: 20100210
  2. PROPECIA [Suspect]
     Indication: ANDROGENETIC ALOPECIA
     Dosage: 1 TABLET DAILY ORAL
     Route: 048
     Dates: start: 20090615, end: 20090716

REACTIONS (28)
  - GYNAECOMASTIA [None]
  - ALOPECIA [None]
  - FATIGUE [None]
  - DEPRESSION [None]
  - DISCOMFORT [None]
  - TESTICULAR ATROPHY [None]
  - HYPOAESTHESIA [None]
  - ECZEMA [None]
  - APATHY [None]
  - SCROTAL DISORDER [None]
  - TESTICULAR PAIN [None]
  - DRY EYE [None]
  - ANHEDONIA [None]
  - DISTURBANCE IN ATTENTION [None]
  - AMNESIA [None]
  - BURNING SENSATION [None]
  - IRRITABILITY [None]
  - LIBIDO DECREASED [None]
  - HAIR COLOUR CHANGES [None]
  - HAIR TEXTURE ABNORMAL [None]
  - PROSTATIC DISORDER [None]
  - DANDRUFF [None]
  - HOT FLUSH [None]
  - ANXIETY [None]
  - SECRETION DISCHARGE [None]
  - GENITAL DISORDER MALE [None]
  - PANIC ATTACK [None]
  - SOCIAL AVOIDANT BEHAVIOUR [None]
